FAERS Safety Report 9110975 (Version 1)
Quarter: 2013Q1

REPORT INFORMATION
  Report Type: Spontaneous
  Country: US (occurrence: US)
  Receive Date: 20130219
  Receipt Date: 20130219
  Transmission Date: 20140127
  Serious: No
  Sender: FDA-Public Use
  Company Number: US-BRISTOL-MYERS SQUIBB COMPANY-16424988

PATIENT
  Age: 58 Year
  Sex: Female

DRUGS (10)
  1. ORENCIA FOR INJ [Suspect]
     Indication: RHEUMATOID ARTHRITIS
     Dosage: NO OF INF:03?LAST INF: 16FEB12?ALSO SQ?1 INJECTION?12JAN12(ORENCIA IV)
     Route: 042
     Dates: start: 20120117, end: 2012
  2. ARAVA [Concomitant]
  3. ZANTAC [Concomitant]
  4. SINGULAIR [Concomitant]
  5. TALACEN [Concomitant]
  6. BENERVA [Concomitant]
  7. ATIVAN [Concomitant]
  8. CYMBALTA [Concomitant]
  9. CALCIUM [Concomitant]
  10. VITAMINS [Concomitant]

REACTIONS (4)
  - Acne [Unknown]
  - Erythema [Unknown]
  - Migraine [Recovered/Resolved]
  - Drug ineffective [Unknown]
